FAERS Safety Report 6823567-2 (Version None)
Quarter: 2010Q3

REPORT INFORMATION
  Report Type: 
  Country: None (occurrence: None)
  Receive Date: 20100708
  Receipt Date: 20100629
  Transmission Date: 20110219
  Serious: Yes (Life-Threatening)
  Sender: FDA-Public Use
  Company Number: IT-BAXTER-2010BH017433

PATIENT
  Age: 74 Year
  Sex: Female

DRUGS (1)
  1. GAMMAGARD LIQUID [Suspect]
     Indication: HYPOGAMMAGLOBULINAEMIA
     Route: 042

REACTIONS (5)
  - DYSPNOEA [None]
  - FLUSHING [None]
  - LOCAL SWELLING [None]
  - OEDEMA PERIPHERAL [None]
  - SWELLING FACE [None]
